FAERS Safety Report 16326579 (Version 2)
Quarter: 2019Q3

REPORT INFORMATION
  Report Type: Spontaneous
  Country: CH (occurrence: CH)
  Receive Date: 20190517
  Receipt Date: 20190817
  Transmission Date: 20191004
  Serious: Yes (Other)
  Sender: FDA-Public Use
  Company Number: CH-AMGEN-CHESP2019075320

PATIENT
  Sex: Male
  Weight: 78 kg

DRUGS (7)
  1. RANEXA [Concomitant]
     Active Substance: RANOLAZINE
     Dosage: 2 X 500 MG
  2. TORASEMIDE [Concomitant]
     Active Substance: TORSEMIDE
     Dosage: 5 MILLIGRAM, AS REQUIRED
  3. REPATHA [Suspect]
     Active Substance: EVOLOCUMAB
     Indication: PRODUCT USED FOR UNKNOWN INDICATION
     Dosage: 140 MILLIGRAM, Q2WK
     Route: 058
  4. LIVAZO [Concomitant]
     Active Substance: PITAVASTATIN CALCIUM
     Dosage: 2 MILLIGRAM
  5. ASPIRIN [ACETYLSALICYLIC ACID] [Concomitant]
     Active Substance: ASPIRIN
  6. RANEXA [Concomitant]
     Active Substance: RANOLAZINE
     Dosage: 375 MILLIGRAM, BID
  7. ASPIRIN CARDIO [Concomitant]
     Active Substance: ASPIRIN
     Dosage: UNK UNK, QD

REACTIONS (9)
  - Myalgia [Unknown]
  - Compartment syndrome [Unknown]
  - Thrombocytopenia [Unknown]
  - Sinus bradycardia [Unknown]
  - Chondropathy [Unknown]
  - Therapeutic product effect decreased [Unknown]
  - Coronary artery disease [Unknown]
  - Transient ischaemic attack [Unknown]
  - Vasculitis [Unknown]

NARRATIVE: CASE EVENT DATE: 20180508
